FAERS Safety Report 13269051 (Version 1)
Quarter: 2017Q1

REPORT INFORMATION
  Report Type: Spontaneous
  Country: US (occurrence: US)
  Receive Date: 20170224
  Receipt Date: 20170224
  Transmission Date: 20170428
  Serious: Yes (Other)
  Sender: FDA-Public Use
  Company Number: US-JNJFOC-20170209991

PATIENT
  Sex: Male

DRUGS (1)
  1. DARZALEX [Suspect]
     Active Substance: DARATUMUMAB
     Indication: PRODUCT USED FOR UNKNOWN INDICATION
     Route: 042
     Dates: start: 20170201, end: 20170201

REACTIONS (9)
  - Hypersensitivity [Unknown]
  - Nausea [Recovering/Resolving]
  - Tachycardia [Unknown]
  - Infusion related reaction [Unknown]
  - Palpitations [Recovering/Resolving]
  - Chills [Unknown]
  - Abdominal pain [Unknown]
  - Blood pressure increased [Unknown]
  - Hyperhidrosis [Unknown]

NARRATIVE: CASE EVENT DATE: 20170201
